FAERS Safety Report 9247416 (Version 1)
Quarter: 2013Q2

REPORT INFORMATION
  Report Type: Report from Study
  Country: EG (occurrence: EG)
  Receive Date: 20130423
  Receipt Date: 20130423
  Transmission Date: 20140414
  Serious: Yes (Other)
  Sender: FDA-Public Use
  Company Number: EG-SANOFI-AVENTIS-2013SA039667

PATIENT
  Age: 21 Year
  Sex: Female

DRUGS (1)
  1. INSULIN GLARGINE [Suspect]
     Indication: TYPE 1 DIABETES MELLITUS
     Route: 058
     Dates: start: 20130225

REACTIONS (3)
  - Fall [Recovered/Resolved]
  - Abortion [Unknown]
  - Exposure during pregnancy [Unknown]
